FAERS Safety Report 17278892 (Version 2)
Quarter: 2020Q1

REPORT INFORMATION
  Report Type: Spontaneous
  Country: US (occurrence: US)
  Receive Date: 20200116
  Receipt Date: 20200312
  Transmission Date: 20200409
  Serious: No
  Sender: FDA-Public Use
  Company Number: US-LUNDBECK-DKLU3009815

PATIENT
  Sex: Male

DRUGS (5)
  1. SULFATRIM PD [Concomitant]
     Indication: PRODUCT USED FOR UNKNOWN INDICATION
     Route: 065
  2. OXCARBAZEPIN [Concomitant]
     Active Substance: OXCARBAZEPINE
     Indication: PRODUCT USED FOR UNKNOWN INDICATION
     Route: 065
  3. SABRIL [Suspect]
     Active Substance: VIGABATRIN
     Indication: INFANTILE SPASMS
     Route: 048
     Dates: start: 20191204
  4. IBUPROFEN. [Concomitant]
     Active Substance: IBUPROFEN
     Indication: PRODUCT USED FOR UNKNOWN INDICATION
     Route: 065
  5. RANITIDINE. [Concomitant]
     Active Substance: RANITIDINE
     Indication: PRODUCT USED FOR UNKNOWN INDICATION
     Route: 065

REACTIONS (1)
  - Circadian rhythm sleep disorder [Recovered/Resolved]
